FAERS Safety Report 8377496-6 (Version None)
Quarter: 2012Q2

REPORT INFORMATION
  Report Type: 
  Country: None (occurrence: None)
  Receive Date: 20120522
  Receipt Date: 20110601
  Transmission Date: 20120825
  Serious: No
  Sender: FDA-Public Use
  Company Number: US-ASTRAZENECA-2011SE33779

PATIENT
  Age: 76 Year
  Sex: Female

DRUGS (3)
  1. PRILOSEC [Suspect]
     Route: 048
  2. BIAXIN [Concomitant]
  3. FLAGYL [Concomitant]

REACTIONS (9)
  - VOMITING [None]
  - WEIGHT DECREASED [None]
  - ASTHENIA [None]
  - HELICOBACTER INFECTION [None]
  - GASTROENTERITIS VIRAL [None]
  - MALAISE [None]
  - NAUSEA [None]
  - GASTRIC MUCOSAL HYPERTROPHY [None]
  - INFLUENZA LIKE ILLNESS [None]
